FAERS Safety Report 8597016-0 (Version None)
Quarter: 2012Q3

REPORT INFORMATION
  Report Type: 
  Country: None (occurrence: None)
  Receive Date: 20120816
  Receipt Date: 20120522
  Transmission Date: 20120928
  Serious: No
  Sender: FDA-Public Use
  Company Number: US-009507513-1208USA004076

PATIENT

DRUGS (1)
  1. BAIN DE SOLEIL SPRAY TRANSPARE CONTINUOUS SPRAY SPF-10 [Suspect]
     Indication: PRODUCT USED FOR UNKNOWN INDICATION
     Dosage: UNK, UNKNOWN
     Route: 061

REACTIONS (2)
  - SKIN IRRITATION [None]
  - SKIN BURNING SENSATION [None]
